FAERS Safety Report 14690268 (Version 1)
Quarter: 2018Q1

REPORT INFORMATION
  Report Type: Spontaneous
  Country: FI (occurrence: FI)
  Receive Date: 20180328
  Receipt Date: 20180328
  Transmission Date: 20180509
  Serious: Yes (Hospitalization)
  Sender: FDA-Public Use
  Company Number: FI-SA-2018SA050668

PATIENT
  Sex: Male

DRUGS (1)
  1. KLEXANE [Suspect]
     Active Substance: ENOXAPARIN
     Route: 065
     Dates: start: 2017

REACTIONS (1)
  - Drug abuse [Unknown]
